FAERS Safety Report 7192041-9 (Version None)
Quarter: 2010Q4

REPORT INFORMATION
  Report Type: 
  Country: None (occurrence: None)
  Receive Date: 20101223
  Receipt Date: 20101213
  Transmission Date: 20110411
  Serious: Yes (Death, Hospitalization)
  Sender: FDA-Public Use
  Company Number: JP-BAYER-200812794BYL

PATIENT
  Age: 37 Year
  Sex: Male
  Weight: 76 kg

DRUGS (8)
  1. NEXAVAR [Suspect]
     Indication: RENAL CELL CARCINOMA STAGE IV
     Dosage: 800 MG (DAILY DOSE), , ORAL
     Route: 048
     Dates: start: 20080428, end: 20081106
  2. ADALAT CC [Concomitant]
     Dosage: 40 MG, UNK
     Route: 048
     Dates: end: 20081226
  3. NU-LOTAN [Concomitant]
     Dosage: 50 MG, UNK
     Route: 048
     Dates: end: 20081226
  4. ADALAT [Concomitant]
     Dosage: 10 MG, PRN
     Route: 048
     Dates: end: 20081226
  5. AMOBAN [Concomitant]
     Dosage: 7.5 MG, PRN
     Route: 048
     Dates: end: 20081226
  6. INTRON A [Concomitant]
     Dosage: 6 MIU, UNK
     Route: 030
     Dates: end: 20081226
  7. MOBIC [Concomitant]
     Dosage: 10 MG, UNK
     Route: 048
     Dates: end: 20081226
  8. UFT [Concomitant]
     Dosage: 2 DF, UNK
     Route: 048
     Dates: end: 20081226

REACTIONS (7)
  - ALANINE AMINOTRANSFERASE INCREASED [None]
  - ASPARTATE AMINOTRANSFERASE INCREASED [None]
  - BLOOD LACTATE DEHYDROGENASE INCREASED [None]
  - LIPASE INCREASED [None]
  - MALIGNANT NEOPLASM PROGRESSION [None]
  - METASTATIC RENAL CELL CARCINOMA [None]
  - PALMAR-PLANTAR ERYTHRODYSAESTHESIA SYNDROME [None]
